FAERS Safety Report 6388319-9 (Version None)
Quarter: 2009Q4

REPORT INFORMATION
  Report Type: 
  Country: None (occurrence: None)
  Receive Date: 20091005
  Receipt Date: 20090925
  Transmission Date: 20100525
  Serious: Yes (Hospitalization, Other)
  Sender: FDA-Public Use
  Company Number: US-PURDUE-USA-2009-0038947

PATIENT
  Sex: Male
  Weight: 86.168 kg

DRUGS (14)
  1. OXYCONTIN [Suspect]
     Indication: PAIN
     Dosage: 80 MG, Q8H
     Dates: start: 20020313, end: 20021130
  2. NPH INSULIN [Concomitant]
  3. PREDNISONE TAB [Concomitant]
  4. EFFEXOR [Concomitant]
  5. METOPROLOL [Concomitant]
  6. ASPIRIN [Concomitant]
  7. RAMIPRIL [Concomitant]
  8. DIGOXIN [Concomitant]
  9. VALIUM [Concomitant]
  10. LOPERAMIDE [Concomitant]
  11. LIPITOR [Concomitant]
  12. ALLEGRA [Concomitant]
  13. CLONIDINE [Concomitant]
  14. TYLENOL (CAPLET) [Concomitant]

REACTIONS (16)
  - AMNESIA [None]
  - CONFUSIONAL STATE [None]
  - CONSTIPATION [None]
  - DISORIENTATION [None]
  - DIZZINESS [None]
  - DRUG DEPENDENCE [None]
  - DRUG WITHDRAWAL SYNDROME [None]
  - FALL [None]
  - FLUID RETENTION [None]
  - HEPATIC CIRRHOSIS [None]
  - IMPAIRED DRIVING ABILITY [None]
  - INSOMNIA [None]
  - LETHARGY [None]
  - LIBIDO DECREASED [None]
  - MOOD SWINGS [None]
  - SUICIDAL IDEATION [None]
